APPROVED DRUG PRODUCT: DEXTROAMP SACCHARATE,AMP ASPARTATE,DEXTROAMP SULFATE AND AMP SULFATE
Active Ingredient: AMPHETAMINE ASPARTATE; AMPHETAMINE SULFATE; DEXTROAMPHETAMINE SACCHARATE; DEXTROAMPHETAMINE SULFATE
Strength: 6.25MG;6.25MG;6.25MG;6.25MG
Dosage Form/Route: CAPSULE, EXTENDED RELEASE;ORAL
Application: A076536 | Product #005
Applicant: BARR LABORATORIES INC
Approved: Feb 12, 2013 | RLD: No | RS: No | Type: DISCN